FAERS Safety Report 15508542 (Version 3)
Quarter: 2018Q4

REPORT INFORMATION
  Report Type: Report from Study
  Country: IT (occurrence: IT)
  Receive Date: 20181016
  Receipt Date: 20181113
  Transmission Date: 20190205
  Serious: Yes (Hospitalization, Other)
  Sender: FDA-Public Use
  Company Number: IT-PFIZER INC-2018405389

PATIENT
  Age: 23 Year
  Sex: Male
  Weight: 96 kg

DRUGS (2)
  1. SUNITINIB MALATE. [Suspect]
     Active Substance: SUNITINIB MALATE
     Dosage: 25 MG, DAILY
     Dates: start: 20180625, end: 20180928
  2. BMS-936558 [Suspect]
     Active Substance: NIVOLUMAB
     Dosage: 3 MG/KG, CYCLIC, Q14
     Dates: start: 20180723, end: 20180919

REACTIONS (2)
  - Pulmonary haemorrhage [Recovered/Resolved]
  - Pneumothorax [Recovered/Resolved]

NARRATIVE: CASE EVENT DATE: 20181002
